FAERS Safety Report 10559683 (Version 1)
Quarter: 2014Q4

REPORT INFORMATION
  Report Type: Spontaneous
  Country: DE (occurrence: None)
  Receive Date: 20141030
  Receipt Date: 20141030
  Transmission Date: 20150529
  Serious: Yes (Life-Threatening, Hospitalization)
  Sender: FDA-Public Use
  Company Number: IMP_07982_2014

PATIENT
  Age: 42 Year
  Sex: Female
  Weight: 69 kg

DRUGS (1)
  1. PENTOXIFYLLINE. [Suspect]
     Active Substance: PENTOXIFYLLINE
     Indication: PRODUCT USED FOR UNKNOWN INDICATION

REACTIONS (9)
  - Loss of consciousness [None]
  - Metabolic acidosis [None]
  - Oliguria [None]
  - Haemodynamic instability [None]
  - Intentional overdose [None]
  - Coma [None]
  - Shock [None]
  - Haemodialysis [None]
  - Toxicity to various agents [None]
